FAERS Safety Report 5782178-0 (Version None)
Quarter: 2008Q2

REPORT INFORMATION
  Report Type: 
  Country: None (occurrence: None)
  Receive Date: 20080623
  Receipt Date: 20080614
  Transmission Date: 20081010
  Serious: Yes (Hospitalization)
  Sender: FDA-Public Use
  Company Number: AU-SANOFI-SYNTHELABO-A01200805923

PATIENT
  Sex: Male

DRUGS (3)
  1. PLAVIX [Suspect]
     Indication: TRANSIENT ISCHAEMIC ATTACK
     Route: 048
     Dates: start: 19961205
  2. ASPIRIN DBL [Concomitant]
     Indication: TRANSIENT ISCHAEMIC ATTACK
     Route: 048
  3. ASPIRIN DBL [Concomitant]
     Indication: POLYCYTHAEMIA
     Route: 048

REACTIONS (1)
  - APPENDICITIS PERFORATED [None]
